FAERS Safety Report 8388549-0 (Version None)
Quarter: 2012Q2

REPORT INFORMATION
  Report Type: 
  Country: None (occurrence: None)
  Receive Date: 20120525
  Receipt Date: 20120514
  Transmission Date: 20120825
  Serious: Yes (Other)
  Sender: FDA-Public Use
  Company Number: BR-AMGEN-BRASP2012031632

PATIENT
  Age: 59 Year
  Sex: Female
  Weight: 85 kg

DRUGS (5)
  1. DEFLANIL [Concomitant]
     Dosage: UNK
  2. SERTRALINE HYDROCHLORIDE [Concomitant]
     Dosage: UNK
  3. ENBREL [Suspect]
     Indication: RHEUMATOID ARTHRITIS
     Dosage: 25 MG, 2X/WEEK
     Route: 058
     Dates: start: 20090401
  4. DONAREN [Concomitant]
     Dosage: UNK
  5. DORFLEX [Concomitant]
     Dosage: UNK

REACTIONS (3)
  - INFECTION [None]
  - SPINAL PAIN [None]
  - INFLAMMATION [None]
